FAERS Safety Report 7814387-0 (Version None)
Quarter: 2011Q4

REPORT INFORMATION
  Report Type: 
  Country: None (occurrence: None)
  Receive Date: 20111014
  Receipt Date: 20111003
  Transmission Date: 20120403
  Serious: Yes (Other)
  Sender: FDA-Public Use
  Company Number: PHHY2011SI88176

PATIENT
  Age: 51 Year
  Sex: Male

DRUGS (8)
  1. ALISKIREN [Suspect]
     Indication: HYPERTENSION
     Dosage: 150 MG, QD
     Dates: start: 20091201
  2. BISOPROLOL [Concomitant]
     Dosage: 5 MG, UNK
     Dates: start: 20110322
  3. AMLODIPINE BESYLATE [Concomitant]
     Dosage: UNK
     Dates: start: 20110322
  4. ASPIRIN [Concomitant]
     Indication: DIABETES MELLITUS
     Dosage: 100 MG PER DAY
  5. VASILIP [Concomitant]
     Indication: DIABETES MELLITUS
     Dosage: 20 MG, UNK
  6. MICARDIS HCT [Concomitant]
     Dosage: UNK
     Dates: start: 20110322
  7. PLIVIT D3 [Concomitant]
     Indication: RENAL FAILURE CHRONIC
     Dosage: 1000 OT, (1000 I.E)
  8. INSULIN [Concomitant]
     Indication: DIABETES MELLITUS
     Dosage: 28 OT, (28 I.E)

REACTIONS (2)
  - BLOOD CREATININE INCREASED [None]
  - GLYCOSYLATED HAEMOGLOBIN INCREASED [None]
